FAERS Safety Report 7427395-9 (Version None)
Quarter: 2011Q2

REPORT INFORMATION
  Report Type: 
  Country: None (occurrence: None)
  Receive Date: 20110420
  Receipt Date: 20110323
  Transmission Date: 20111010
  Serious: No
  Sender: FDA-Public Use
  Company Number: US-B.I. PHARMACEUTICALS,INC./RIDGEFIELD-2011-BP-09061BP

PATIENT
  Age: 54 Year
  Sex: Female

DRUGS (1)
  1. MICARDIS HCT [Suspect]
     Indication: HYPERTENSION
     Route: 048
     Dates: start: 20090101

REACTIONS (4)
  - MYALGIA [None]
  - PARAESTHESIA ORAL [None]
  - THYROID DISORDER [None]
  - ARTHRALGIA [None]
